FAERS Safety Report 7122540-7 (Version None)
Quarter: 2010Q4

REPORT INFORMATION
  Report Type: 
  Country: None (occurrence: None)
  Receive Date: 20101122
  Receipt Date: 20101122
  Transmission Date: 20110411
  Serious: Yes (Hospitalization)
  Sender: FDA-Public Use
  Company Number: None

PATIENT
  Sex: Male
  Weight: 79.1 kg

DRUGS (8)
  1. CYCLOPHOSPHAMIDE [Suspect]
     Dosage: 2010 MG
  2. CYTARABINE [Suspect]
     Dosage: 1206 MG
  3. DEXAMETHASONE [Suspect]
  4. METHOTREXATE [Suspect]
     Dosage: 45 MG
  5. PEG-L-ASPARAGINASE (K-H) [Suspect]
     Dosage: 9975 IU
  6. THIOGUANINE [Suspect]
  7. VINCRISTINE SULFATE [Suspect]
     Dosage: 4 MG
  8. DOXORUBICIN HYDROCHLORIDE [Suspect]
     Dosage: 150 MG

REACTIONS (4)
  - FATIGUE [None]
  - FEBRILE NEUTROPENIA [None]
  - HEADACHE [None]
  - NAUSEA [None]
